FAERS Safety Report 4439063-6 (Version None)
Quarter: 2004Q3

REPORT INFORMATION
  Report Type: 
  Country: None (occurrence: None)
  Receive Date: 20040901
  Receipt Date: 20030319
  Transmission Date: 20050211
  Serious: Yes (Other)
  Sender: FDA-Public Use
  Company Number: GB-GLAXOSMITHKLINE-B0295727A

PATIENT
  Age: 38 Year
  Sex: Female
  Weight: 70 kg

DRUGS (6)
  1. ATOVAQUONE + PROGUANIL HYDROCHLORIDE [Suspect]
     Indication: PROPHYLAXIS
     Dosage: 1TAB PER DAY
     Route: 048
     Dates: start: 20030301, end: 20030319
  2. TYPHIM VI [Concomitant]
     Indication: PROPHYLAXIS
     Dosage: 25MCG SINGLE DOSE
     Route: 030
     Dates: start: 20030211, end: 20030211
  3. DIFTAVAX [Concomitant]
     Indication: PROPHYLAXIS
     Dosage: .5ML SINGLE DOSE
     Route: 030
     Dates: start: 20030211, end: 20030211
  4. AVAXIM [Concomitant]
     Indication: PROPHYLAXIS
     Route: 030
     Dates: start: 20030211, end: 20030211
  5. ARILVAX [Concomitant]
     Indication: PROPHYLAXIS
     Route: 030
     Dates: start: 20030211, end: 20030211
  6. POLIO ORAL VACCINE [Concomitant]
     Route: 048
     Dates: start: 20030211, end: 20030211

REACTIONS (1)
  - ABORTION SPONTANEOUS [None]
